FAERS Safety Report 16425380 (Version 1)
Quarter: 2019Q2

REPORT INFORMATION
  Report Type: Spontaneous
  Country: US (occurrence: US)
  Receive Date: 20190613
  Receipt Date: 20190613
  Transmission Date: 20190711
  Serious: Yes (Other)
  Sender: FDA-Public Use
  Company Number: US-BAYER-2019-110432

PATIENT
  Age: 38 Year
  Sex: Female
  Weight: 72.56 kg

DRUGS (1)
  1. COPPERTONE SPORT SPF 50 [Suspect]
     Active Substance: AVOBENZONE\HOMOSALATE\OCTISALATE\OCTOCRYLENE\OXYBENZONE
     Indication: THERAPEUTIC SKIN CARE TOPICAL
     Dosage: 1 DF
     Route: 061
     Dates: start: 20190527, end: 20190527

REACTIONS (7)
  - Pain of skin [Unknown]
  - Skin burning sensation [Unknown]
  - Blister [Unknown]
  - Second degree chemical burn of skin [Unknown]
  - Skin swelling [Unknown]
  - Dry skin [Unknown]
  - Skin wrinkling [Unknown]
